FAERS Safety Report 5309789-0 (Version None)
Quarter: 2007Q2

REPORT INFORMATION
  Report Type: 
  Country: None (occurrence: None)
  Receive Date: 20070427
  Receipt Date: 20060314
  Transmission Date: 20071010
  Serious: Yes (Other)
  Sender: FDA-Public Use
  Company Number: US-GLAXOSMITHKLINE-A0597535A

PATIENT
  Sex: Male

DRUGS (4)
  1. ZOFRAN [Suspect]
     Indication: PROPHYLAXIS OF NAUSEA AND VOMITING
     Dosage: 8MG TWICE PER DAY
     Route: 048
  2. TAXOL [Concomitant]
  3. CARBOPLATIN [Concomitant]
  4. FLUOROURACIL [Concomitant]

REACTIONS (1)
  - HEPATIC ENZYME INCREASED [None]
